FAERS Safety Report 13915784 (Version 1)
Quarter: 2017Q3

REPORT INFORMATION
  Report Type: Spontaneous
  Country: US (occurrence: None)
  Receive Date: 20170827
  Receipt Date: 20170827
  Transmission Date: 20171127
  Serious: No
  Sender: FDA-Public Use
  Company Number: None

PATIENT
  Age: 53 Year
  Sex: Female

DRUGS (1)
  1. TACROLIMUS CAP 0.5MG ACCORD HEALTHCARE [Suspect]
     Active Substance: TACROLIMUS

REACTIONS (1)
  - Tremor [None]

NARRATIVE: CASE EVENT DATE: 20170826
